FAERS Safety Report 5383839-8 (Version None)
Quarter: 2007Q3

REPORT INFORMATION
  Report Type: 
  Country: None (occurrence: None)
  Receive Date: 20070706
  Receipt Date: 20070626
  Transmission Date: 20080115
  Serious: Yes (Hospitalization, Other)
  Sender: FDA-Public Use
  Company Number: 38491

PATIENT
  Age: 58 Year
  Sex: Male

DRUGS (1)
  1. ACETAZOLAMIDE [Suspect]
     Indication: MACULOPATHY
     Dosage: 250 MG/8H;

REACTIONS (1)
  - RENAL FAILURE ACUTE [None]
